FAERS Safety Report 7781069-3 (Version None)
Quarter: 2011Q3

REPORT INFORMATION
  Report Type: 
  Country: None (occurrence: None)
  Receive Date: 20110927
  Receipt Date: 20110914
  Transmission Date: 20111222
  Serious: Yes (Hospitalization, Other)
  Sender: FDA-Public Use
  Company Number: PHHY2011BR82554

PATIENT
  Sex: Male
  Weight: 76.9 kg

DRUGS (6)
  1. DIOVAN [Suspect]
     Dosage: 1 TABLET DAILY (160 MG)
     Route: 048
  2. WARFARIN SODIUM [Concomitant]
     Indication: ANTICOAGULANT THERAPY
     Dosage: 1 TABLET DAILY
     Route: 048
  3. METFORMIN HCL [Concomitant]
     Indication: DIABETES MELLITUS
     Dosage: 1 TABLET DAILY
     Route: 048
  4. ATENOLOL [Concomitant]
     Indication: ARRHYTHMIA
     Dosage: 1 TABLET EVERY 12 HOURS
     Route: 048
  5. DABIGATRAN [Concomitant]
     Indication: ANTICOAGULANT THERAPY
     Dosage: 1 TABLET EVERY 12 HOURS
     Route: 048
  6. DIOVAN [Suspect]
     Indication: BLOOD PRESSURE INADEQUATELY CONTROLLED
     Dosage: 1 TABLET DAILY (160 MG)
     Route: 048

REACTIONS (1)
  - CEREBROVASCULAR ACCIDENT [None]
